FAERS Safety Report 6047221-2 (Version None)
Quarter: 2009Q1

REPORT INFORMATION
  Report Type: 
  Country: None (occurrence: None)
  Receive Date: 20090121
  Receipt Date: 20080827
  Transmission Date: 20090719
  Serious: Yes (Other)
  Sender: FDA-Public Use
  Company Number: A-US2008-21722

PATIENT
  Sex: Female

DRUGS (3)
  1. TRACLEER [Suspect]
     Indication: PULMONARY ARTERIAL HYPERTENSION
     Dosage: 62.5 MG, BID, ORAL ; 62.5 MG, QD, ORAL ; 62.5 MG, QD, ORAL
     Route: 048
     Dates: start: 20080625, end: 20080725
  2. TRACLEER [Suspect]
     Indication: PULMONARY ARTERIAL HYPERTENSION
     Dosage: 62.5 MG, BID, ORAL ; 62.5 MG, QD, ORAL ; 62.5 MG, QD, ORAL
     Route: 048
     Dates: start: 20080726, end: 20080826
  3. TRACLEER [Suspect]
     Indication: PULMONARY ARTERIAL HYPERTENSION
     Dosage: 62.5 MG, BID, ORAL ; 62.5 MG, QD, ORAL ; 62.5 MG, QD, ORAL
     Route: 048
     Dates: start: 20080923

REACTIONS (4)
  - ALANINE AMINOTRANSFERASE INCREASED [None]
  - ASPARTATE AMINOTRANSFERASE INCREASED [None]
  - BLOOD ALKALINE PHOSPHATASE INCREASED [None]
  - LIVER FUNCTION TEST ABNORMAL [None]
